FAERS Safety Report 11213066 (Version 1)
Quarter: 2015Q2

REPORT INFORMATION
  Report Type: Spontaneous
  Country: US (occurrence: None)
  Receive Date: 20150622
  Receipt Date: 20150622
  Transmission Date: 20150821
  Serious: Yes (Other)
  Sender: FDA-Public Use
  Company Number: None

PATIENT
  Age: 51 Year
  Sex: Female
  Weight: 44 kg

DRUGS (11)
  1. XANAX [Concomitant]
     Active Substance: ALPRAZOLAM
  2. KAVA [Concomitant]
     Active Substance: PIPER METHYSTICUM ROOT
  3. MELATONIN [Concomitant]
     Active Substance: MELATONIN
  4. CLONAZEPAM 0.5MG [Suspect]
     Active Substance: CLONAZEPAM
     Indication: POST-TRAUMATIC STRESS DISORDER
     Route: 048
     Dates: start: 20150620, end: 20150620
  5. VITAMIN E [Concomitant]
     Active Substance: .ALPHA.-TOCOPHEROL
  6. WOMAN^S VIT/MON. [Concomitant]
  7. CLONAZEPAM 0.5MG [Suspect]
     Active Substance: CLONAZEPAM
     Indication: ANXIETY
     Route: 048
     Dates: start: 20150620, end: 20150620
  8. GABA [Concomitant]
     Active Substance: .GAMMA.-AMINOBUTYRIC ACID
  9. VITAMIN B12 [Concomitant]
     Active Substance: CYANOCOBALAMIN
  10. LOBELIA [Concomitant]
  11. TROPICAMIDE. [Suspect]
     Active Substance: TROPICAMIDE
     Indication: MYDRIASIS
     Route: 047
     Dates: start: 20150605, end: 20150618

REACTIONS (10)
  - Feeling abnormal [None]
  - Depressed level of consciousness [None]
  - Cognitive disorder [None]
  - Hallucination [None]
  - Memory impairment [None]
  - Restlessness [None]
  - Irritability [None]
  - Apathy [None]
  - Coordination abnormal [None]
  - Fatigue [None]

NARRATIVE: CASE EVENT DATE: 20150620
